FAERS Safety Report 8747423 (Version 8)
Quarter: 2012Q4

REPORT INFORMATION
  Report Type: Report from Study
  Country: JP (occurrence: JP)
  Receive Date: 20120827
  Receipt Date: 20121129
  Transmission Date: 20130627
  Serious: Yes (Death, Hospitalization, Other)
  Sender: FDA-Public Use
  Company Number: JP-JNJFOC-20120811250

PATIENT
  Age: 64 Year
  Sex: Female
  Weight: 58 kg

DRUGS (10)
  1. SIMPONI [Suspect]
     Indication: RHEUMATOID ARTHRITIS
     Route: 058
     Dates: start: 20120705
  2. SIMPONI [Suspect]
     Indication: RHEUMATOID ARTHRITIS
     Route: 058
     Dates: start: 20120406, end: 20120502
  3. METHOTREXATE [Concomitant]
     Indication: RHEUMATOID ARTHRITIS
     Dates: end: 20120814
  4. LORCAM [Concomitant]
     Indication: RHEUMATOID ARTHRITIS
     Route: 048
     Dates: end: 20120814
  5. MOHRUS TAPE [Concomitant]
     Indication: RHEUMATOID ARTHRITIS
     Route: 062
  6. FOLIAMIN [Concomitant]
     Indication: PROPHYLAXIS
  7. ISCOTIN [Concomitant]
     Indication: PROPHYLAXIS
  8. PYDOXAL [Concomitant]
     Indication: PROPHYLAXIS
  9. CYTOTEC [Concomitant]
     Indication: PROPHYLAXIS
     Route: 048
  10. EDIROL [Concomitant]
     Indication: OSTEOPOROSIS
     Route: 048

REACTIONS (4)
  - Circulatory collapse [Fatal]
  - Sepsis [Not Recovered/Not Resolved]
  - Neutrophil count decreased [Not Recovered/Not Resolved]
  - Tumour marker increased [Recovering/Resolving]
